FAERS Safety Report 6401204-9 (Version None)
Quarter: 2009Q4

REPORT INFORMATION
  Report Type: 
  Country: None (occurrence: None)
  Receive Date: 20091015
  Receipt Date: 20091008
  Transmission Date: 20100525
  Serious: Yes (Hospitalization)
  Sender: FDA-Public Use
  Company Number: FR-ROCHE-661314

PATIENT
  Age: 34 Year
  Sex: Female

DRUGS (2)
  1. TAMIFLU [Suspect]
     Route: 065
  2. DANATROL [Concomitant]

REACTIONS (1)
  - ANGIOEDEMA [None]
